FAERS Safety Report 25302014 (Version 1)
Quarter: 2025Q2

REPORT INFORMATION
  Report Type: Spontaneous
  Country: KR (occurrence: KR)
  Receive Date: 20250512
  Receipt Date: 20250512
  Transmission Date: 20250717
  Serious: Yes (Other)
  Sender: OTSUKA
  Company Number: KR-KOREAIMPORT-2253

PATIENT
  Age: 65 Year
  Sex: Male

DRUGS (1)
  1. ABILIFY MAINTENA [Suspect]
     Active Substance: ARIPIPRAZOLE
     Indication: Product used for unknown indication
     Route: 065
     Dates: start: 20180508

REACTIONS (2)
  - Hallucination, auditory [Unknown]
  - Persecutory delusion [Unknown]

NARRATIVE: CASE EVENT DATE: 20180101
